FAERS Safety Report 6816563-2 (Version None)
Quarter: 2010Q3

REPORT INFORMATION
  Report Type: 
  Country: None (occurrence: None)
  Receive Date: 20100706
  Receipt Date: 20100706
  Transmission Date: 20110219
  Serious: Yes (Hospitalization, Other)
  Sender: FDA-Public Use
  Company Number: PHHO2008BE05241

PATIENT
  Sex: Female
  Weight: 61 kg

DRUGS (2)
  1. PLACEBO COMP-PLA+ [Suspect]
     Indication: PANCREATIC NEUROENDOCRINE TUMOUR
     Dosage: PLACEBO
     Route: 048
     Dates: start: 20080312, end: 20080428
  2. RAD001 [Suspect]

REACTIONS (6)
  - ARTHRALGIA [None]
  - DISEASE PROGRESSION [None]
  - DRUG INEFFECTIVE [None]
  - METASTASES TO BONE [None]
  - METASTASES TO LIVER [None]
  - PAIN IN EXTREMITY [None]
